FAERS Safety Report 6739028-5 (Version None)
Quarter: 2010Q2

REPORT INFORMATION
  Report Type: 
  Country: None (occurrence: None)
  Receive Date: 20100524
  Receipt Date: 20100524
  Transmission Date: 20101027
  Serious: Yes (Other)
  Sender: FDA-Public Use
  Company Number: None

PATIENT
  Age: 57 Year
  Sex: Female
  Weight: 78.9259 kg

DRUGS (8)
  1. LYRICA [Suspect]
     Indication: BURNING SENSATION
     Dosage: 225MG 2X PER DAY PO
     Route: 048
     Dates: start: 20061207, end: 20100520
  2. LYRICA [Suspect]
     Indication: FEELING COLD
     Dosage: 225MG 2X PER DAY PO
     Route: 048
     Dates: start: 20061207, end: 20100520
  3. LYRICA [Suspect]
     Indication: FEELING HOT
     Dosage: 225MG 2X PER DAY PO
     Route: 048
     Dates: start: 20061207, end: 20100520
  4. LYRICA [Suspect]
     Indication: HYPOAESTHESIA
     Dosage: 225MG 2X PER DAY PO
     Route: 048
     Dates: start: 20061207, end: 20100520
  5. LYRICA [Suspect]
     Indication: NEURALGIA
     Dosage: 225MG 2X PER DAY PO
     Route: 048
     Dates: start: 20061207, end: 20100520
  6. LYRICA [Suspect]
     Indication: NEUROPATHY PERIPHERAL
     Dosage: 225MG 2X PER DAY PO
     Route: 048
     Dates: start: 20061207, end: 20100520
  7. GABAPENTIN [Concomitant]
  8. LYRICA [Concomitant]

REACTIONS (7)
  - ARTHROPATHY [None]
  - HYPOAESTHESIA [None]
  - HYPOAESTHESIA ORAL [None]
  - LIP SWELLING [None]
  - PHARYNGEAL HYPOAESTHESIA [None]
  - PHARYNGEAL OEDEMA [None]
  - SWOLLEN TONGUE [None]
